FAERS Safety Report 5584484-1 (Version None)
Quarter: 2008Q1

REPORT INFORMATION
  Report Type: 
  Country: None (occurrence: None)
  Receive Date: 20080103
  Receipt Date: 20070209
  Transmission Date: 20080703
  Serious: Yes (Hospitalization)
  Sender: FDA-Public Use
  Company Number: 2007VX000186

PATIENT

DRUGS (1)
  1. PERMAX [Suspect]
     Indication: PARKINSON'S DISEASE
     Dosage: PO
     Route: 048

REACTIONS (2)
  - PLEURAL EFFUSION [None]
  - TUBERCULOSIS [None]
